FAERS Safety Report 9911817 (Version 2)
Quarter: 2014Q1

REPORT INFORMATION
  Report Type: Spontaneous
  Country: US (occurrence: US)
  Receive Date: 20140219
  Receipt Date: 20140219
  Transmission Date: 20141002
  Serious: No
  Sender: FDA-Public Use
  Company Number: US-MYLANLABS-2013S1003452

PATIENT
  Age: 5 Year
  Sex: Male

DRUGS (1)
  1. EPIPEN JR [Suspect]

REACTIONS (3)
  - Accidental exposure to product [Recovered/Resolved]
  - Contusion [Recovered/Resolved]
  - Local swelling [Recovered/Resolved]
